FAERS Safety Report 7772419-2 (Version None)
Quarter: 2011Q3

REPORT INFORMATION
  Report Type: 
  Country: None (occurrence: None)
  Receive Date: 20110922
  Receipt Date: 20110913
  Transmission Date: 20111222
  Serious: Yes (Other)
  Sender: FDA-Public Use
  Company Number: PHHY2011JP81856

PATIENT

DRUGS (3)
  1. DOXAZOSIN MESYLATE [Concomitant]
  2. WELL-BI TABLETS [Suspect]
     Route: 048
  3. TANATRIL [Concomitant]

REACTIONS (2)
  - ATRIOVENTRICULAR BLOCK [None]
  - BRADYCARDIA [None]
